FAERS Safety Report 23627153 (Version 2)
Quarter: 2024Q2

REPORT INFORMATION
  Report Type: Report from Study
  Country: US (occurrence: US)
  Receive Date: 20240313
  Receipt Date: 20240606
  Transmission Date: 20240716
  Serious: No
  Sender: FDA-Public Use
  Company Number: US-SPRINGWORKS THERAPEUTICS-SW-001338

PATIENT
  Age: 34 Year
  Sex: Female

DRUGS (3)
  1. NIROGACESTAT [Suspect]
     Active Substance: NIROGACESTAT
     Indication: Connective tissue neoplasm
     Dosage: 100 MILLIGRAM DAILY
     Route: 048
     Dates: start: 20231203
  2. NIROGACESTAT [Suspect]
     Active Substance: NIROGACESTAT
     Indication: Soft tissue neoplasm
  3. VITAMINS [Concomitant]
     Active Substance: VITAMINS
     Indication: Product used for unknown indication

REACTIONS (9)
  - Gastrointestinal disorder [Unknown]
  - Somnolence [Unknown]
  - Acne [Unknown]
  - Cyst [Unknown]
  - Vitamin D decreased [Unknown]
  - Amenorrhoea [Unknown]
  - Diarrhoea [Unknown]
  - Intentional underdose [Unknown]
  - Product dose omission issue [Unknown]

NARRATIVE: CASE EVENT DATE: 20231001
